FAERS Safety Report 11044029 (Version 1)
Quarter: 2015Q2

REPORT INFORMATION
  Report Type: Spontaneous
  Country: US (occurrence: US)
  Receive Date: 20150417
  Receipt Date: 20150417
  Transmission Date: 20150821
  Serious: No
  Sender: FDA-Public Use
  Company Number: US-BAYER-2015-136399

PATIENT
  Age: 68 Year
  Sex: Female
  Weight: 55.78 kg

DRUGS (4)
  1. ZYRTEC [Concomitant]
     Active Substance: CETIRIZINE HYDROCHLORIDE
  2. NASONEX [Concomitant]
     Active Substance: MOMETASONE FUROATE
  3. ALEVE PM [Suspect]
     Active Substance: DIPHENHYDRAMINE HYDROCHLORIDE\NAPROXEN SODIUM
     Dosage: UNK DF, UNK
     Route: 048
  4. VITAMINS NOS [Concomitant]
     Active Substance: VITAMINS
     Indication: SLEEP DISORDER THERAPY
     Dosage: HALF A TABLET (FOUR TIMES) AND A WHOLE TABLET (ONE TIME)

REACTIONS (3)
  - Medication error [Unknown]
  - Inappropriate schedule of drug administration [None]
  - Nightmare [Recovered/Resolved]
